FAERS Safety Report 8199670-4 (Version None)
Quarter: 2012Q1

REPORT INFORMATION
  Report Type: 
  Country: None (occurrence: None)
  Receive Date: 20120311
  Receipt Date: 20120307
  Transmission Date: 20120608
  Serious: Yes (Hospitalization, Other)
  Sender: FDA-Public Use
  Company Number: US-AMGEN-USASP2011015128

PATIENT
  Age: 66 Year
  Sex: Male
  Weight: 73.02 kg

DRUGS (12)
  1. XGEVA [Suspect]
     Indication: METASTASES TO BONE
     Dosage: 120 MG, Q4WK
     Route: 058
     Dates: start: 20110121, end: 20110218
  2. LIPITOR [Concomitant]
  3. SYMBICORT [Concomitant]
  4. ALOXI [Concomitant]
     Dosage: UNK
     Dates: start: 20111110
  5. METOPROLOL SUCCINATE [Concomitant]
  6. VENTOLIN [Concomitant]
  7. DECADRON [Concomitant]
     Dosage: UNK
     Dates: start: 20111110
  8. AMLODIPINE [Concomitant]
  9. COUMADIN [Concomitant]
  10. ABRAXANE [Concomitant]
     Dosage: UNK
     Dates: start: 20111110
  11. ZOMETA [Concomitant]
     Dosage: UNK
     Dates: end: 20110318
  12. XGEVA [Suspect]
     Indication: SMALL CELL LUNG CANCER METASTATIC

REACTIONS (8)
  - PAIN IN EXTREMITY [None]
  - CHRONIC OBSTRUCTIVE PULMONARY DISEASE [None]
  - OEDEMA PERIPHERAL [None]
  - CARDIOMEGALY [None]
  - SKIN CHAPPED [None]
  - PRURITUS [None]
  - DEEP VEIN THROMBOSIS [None]
  - GENERALISED ERYTHEMA [None]
